FAERS Safety Report 8153545-5 (Version None)
Quarter: 2012Q1

REPORT INFORMATION
  Report Type: 
  Country: None (occurrence: None)
  Receive Date: 20120103
  Receipt Date: 20111030
  Transmission Date: 20120608
  Serious: No
  Sender: FDA-Public Use
  Company Number: AE-2011-002856

PATIENT
  Age: 53 Year
  Sex: Female
  Weight: 86.1834 kg

DRUGS (8)
  1. PEGASYS [Concomitant]
  2. XANAX [Concomitant]
  3. ESTRADIOL [Concomitant]
  4. INCIVEK [Suspect]
     Dosage: 2250 MG (750 MG,1 IN 8 HR),ORAL
     Route: 048
     Dates: start: 20111021
  5. ESTROGEN MTE (ESTROGENS) [Concomitant]
  6. GAVISCON [Concomitant]
  7. ALIGN [Concomitant]
  8. RIASPHERE (RIBAVIRIN) [Concomitant]

REACTIONS (3)
  - HAEMORRHOIDAL HAEMORRHAGE [None]
  - RASH [None]
  - HEADACHE [None]
